FAERS Safety Report 7532210-9 (Version None)
Quarter: 2011Q2

REPORT INFORMATION
  Report Type: 
  Country: None (occurrence: None)
  Receive Date: 20110601
  Receipt Date: 20110520
  Transmission Date: 20111010
  Serious: Yes (Hospitalization)
  Sender: FDA-Public Use
  Company Number: 2011001739

PATIENT
  Age: 83 Year
  Sex: Male
  Weight: 72 kg

DRUGS (12)
  1. GABAPENTIN [Concomitant]
  2. ADVAIR HFA [Concomitant]
  3. LASIX [Concomitant]
  4. COUMADIN [Concomitant]
  5. ENOXAPARIN SODIUM [Concomitant]
  6. POTASSIUM CHLORIDE [Concomitant]
  7. AZD6244 HYDROGEN SULFATE [Suspect]
     Indication: NON-SMALL CELL LUNG CANCER
     Dosage: 150MG, ORAL
     Route: 048
     Dates: start: 20110406, end: 20110411
  8. METOPROLOL TARTRATE [Concomitant]
  9. ERLOTINIB (ERLOTINIB HYDROCHLORIDE) TABLET [Suspect]
     Indication: NON-SMALL CELL LUNG CANCER
     Dosage: 100 MG, UID/QD, ORAL
     Route: 048
     Dates: start: 20110406, end: 20110411
  10. ALLOPURINOL [Concomitant]
  11. CALCIUM +VIT D (CALCIUM, COLECALCIFEROL) [Concomitant]
  12. SPIRIVA [Concomitant]

REACTIONS (14)
  - PLEURAL EFFUSION [None]
  - LUNG CONSOLIDATION [None]
  - VOMITING [None]
  - DIARRHOEA [None]
  - PROTHROMBIN TIME PROLONGED [None]
  - GASTROINTESTINAL HAEMORRHAGE [None]
  - INTERNATIONAL NORMALISED RATIO INCREASED [None]
  - RESPIRATORY FAILURE [None]
  - HAEMATOCHEZIA [None]
  - HYPOTENSION [None]
  - NAUSEA [None]
  - ATELECTASIS [None]
  - RENAL FAILURE ACUTE [None]
  - HAEMOGLOBIN DECREASED [None]
